FAERS Safety Report 8413209-7 (Version None)
Quarter: 2012Q2

REPORT INFORMATION
  Report Type: 
  Country: None (occurrence: None)
  Receive Date: 20120605
  Receipt Date: 20120525
  Transmission Date: 20120825
  Serious: Yes (Disabling)
  Sender: FDA-Public Use
  Company Number: IE-FRI-1000030987

PATIENT
  Sex: Male

DRUGS (2)
  1. MEMANTINE HCL [Suspect]
     Indication: DEMENTIA ALZHEIMER'S TYPE
  2. BACLOFEN [Suspect]

REACTIONS (2)
  - DRUG INTERACTION [None]
  - MUSCLE CONTRACTIONS INVOLUNTARY [None]
